FAERS Safety Report 12182679 (Version 1)
Quarter: 2016Q1

REPORT INFORMATION
  Report Type: Spontaneous
  Country: US (occurrence: None)
  Receive Date: 20160315
  Receipt Date: 20160315
  Transmission Date: 20160526
  Serious: No
  Sender: FDA-Public Use
  Company Number: None

PATIENT
  Sex: Female

DRUGS (4)
  1. SEROQUEL [Suspect]
     Active Substance: QUETIAPINE FUMARATE
  2. DEPAKOTE [Suspect]
     Active Substance: DIVALPROEX SODIUM
  3. LITHIUM. [Suspect]
     Active Substance: LITHIUM
  4. FANAPT [Suspect]
     Active Substance: ILOPERIDONE

REACTIONS (2)
  - Panic attack [None]
  - Ill-defined disorder [None]
